FAERS Safety Report 19068604 (Version 1)
Quarter: 2021Q1

REPORT INFORMATION
  Report Type: Spontaneous
  Country: US (occurrence: US)
  Receive Date: 20210329
  Receipt Date: 20210329
  Transmission Date: 20210420
  Serious: No
  Sender: FDA-Public Use
  Company Number: US-MYLANLABS-2021M1014377

PATIENT
  Sex: Female

DRUGS (1)
  1. ZOLPIDEM [Suspect]
     Active Substance: ZOLPIDEM TARTRATE
     Indication: PRODUCT USED FOR UNKNOWN INDICATION
     Dosage: UNK
     Route: 065

REACTIONS (7)
  - Migraine [Unknown]
  - Feeling abnormal [Unknown]
  - Eye irritation [Unknown]
  - Malaise [Unknown]
  - General physical health deterioration [Unknown]
  - Therapeutic product effect incomplete [Unknown]
  - Fatigue [Unknown]

NARRATIVE: CASE EVENT DATE: 20200915
